FAERS Safety Report 9728571 (Version 1)
Quarter: 2013Q4

REPORT INFORMATION
  Report Type: Spontaneous
  Country: DE (occurrence: None)
  Receive Date: 20131202
  Receipt Date: 20131202
  Transmission Date: 20140711
  Serious: Yes (Other)
  Sender: FDA-Public Use
  Company Number: SYM-2013-13297

PATIENT
  Age: 37 Year
  Sex: Female

DRUGS (5)
  1. FLUOROURACIL (FLUOROURACIL) [Suspect]
     Indication: METASTASES TO OVARY
  2. DOCETAXEL (DOCETAXEL) (DOCETAXEL) [Suspect]
     Indication: METASTASES TO OVARY
  3. CISPLATIN (CISPLATIN) (CISPLATIN) [Suspect]
     Indication: METASTASES TO OVARY
  4. BEVACIZUMAB [Suspect]
     Indication: METASTASES TO OVARY
  5. LEVOTHYROXINE (LEVOTHYROXINE) (LEVOTHYROXINE) [Concomitant]

REACTIONS (7)
  - Weight decreased [None]
  - Androgens increased [None]
  - Nausea [None]
  - Vomiting [None]
  - Decreased appetite [None]
  - Progesterone increased [None]
  - 17-hydroxyprogesterone increased [None]
